FAERS Safety Report 23031851 (Version 3)
Quarter: 2024Q4

REPORT INFORMATION
  Report Type: Spontaneous
  Country: US (occurrence: US)
  Receive Date: 20231005
  Receipt Date: 20241228
  Transmission Date: 20250115
  Serious: No
  Sender: LUPIN
  Company Number: US-LUPIN PHARMACEUTICALS INC.-2023-08445

PATIENT

DRUGS (3)
  1. ALBUTEROL SULFATE [Suspect]
     Active Substance: ALBUTEROL SULFATE
     Indication: Asthma
     Dosage: UNK UNK, QID, 4 TIMES A DAY
     Dates: start: 20230801
  2. ALBUTEROL SULFATE [Suspect]
     Active Substance: ALBUTEROL SULFATE
     Dosage: UNK UNK, QID, 4 TIMES A DAY
     Dates: start: 20230901
  3. LEVOCETIRIZINE [Concomitant]
     Active Substance: LEVOCETIRIZINE
     Indication: Hypersensitivity
     Dosage: 5 MG, QD (ONCE A DAY)
     Route: 065

REACTIONS (4)
  - Wrong technique in product usage process [Unknown]
  - Product substitution issue [Unknown]
  - Product preparation error [Unknown]
  - No adverse event [Unknown]
